FAERS Safety Report 8399896-0 (Version None)
Quarter: 2012Q2

REPORT INFORMATION
  Report Type: 
  Country: None (occurrence: None)
  Receive Date: 20120531
  Receipt Date: 20120521
  Transmission Date: 20120825
  Serious: Yes (Hospitalization, Other)
  Sender: FDA-Public Use
  Company Number: US-ELI_LILLY_AND_COMPANY-US201106002452

PATIENT
  Sex: Female

DRUGS (12)
  1. PREDNISONE TAB [Concomitant]
     Dosage: 10 MG, UNK
  2. VORICONAZOLE [Concomitant]
     Dosage: 200 MG, BID
  3. CALCIUM VITAMIN D [Concomitant]
     Dosage: 600 MG, UNK
  4. FORTEO [Suspect]
     Dosage: 20 UG, QD
     Dates: end: 20120424
  5. POTASSIUM CHLORIDE [Concomitant]
     Dosage: 20 MG, QD
  6. MAG OXIDE [Concomitant]
     Dosage: 400 MG, BID
  7. MULTI-VITAMINS [Concomitant]
  8. FORTEO [Suspect]
     Indication: OSTEOPOROSIS
     Dosage: 20 UG, QD
  9. FORTEO [Suspect]
     Dosage: 20 UG, QD
  10. CEFPODOXIME PROXETIL [Concomitant]
     Dosage: 200 MG, BID
  11. LOPRESSOR [Concomitant]
     Dosage: 25 MG, BID
  12. CHLORTHALIDONE [Concomitant]
     Dosage: 12.5 MG, BID

REACTIONS (7)
  - PNEUMONIA [None]
  - CONTUSION [None]
  - NAIL INJURY [None]
  - BODY TEMPERATURE INCREASED [None]
  - BRONCHITIS [None]
  - DEHYDRATION [None]
  - ASPERGILLOSIS [None]
